FAERS Safety Report 20538204 (Version 3)
Quarter: 2022Q1

REPORT INFORMATION
  Report Type: Spontaneous
  Country: RO (occurrence: RO)
  Receive Date: 20220302
  Receipt Date: 20220307
  Transmission Date: 20220423
  Serious: Yes (Other)
  Sender: FDA-Public Use
  Company Number: RO-ABBVIE-22K-135-4295618-00

PATIENT
  Age: 58 Year
  Sex: Female

DRUGS (3)
  1. VENETOCLAX [Suspect]
     Active Substance: VENETOCLAX
     Indication: Chronic lymphocytic leukaemia stage 2
     Dosage: 5 WEEK -20-400 MG /DAY STARTING ON DAY 22 OF CYCLE 1, 400 MG /DAY UNTIL END OF CYCLE 12
     Route: 048
     Dates: start: 202109, end: 20211117
  2. VENETOCLAX [Suspect]
     Active Substance: VENETOCLAX
     Route: 048
     Dates: start: 20211202, end: 20220225
  3. OBINUTUZUMAB [Concomitant]
     Active Substance: OBINUTUZUMAB
     Indication: Chronic lymphocytic leukaemia
     Dosage: 1000 MG - DAYS 1,8,15 OF CYCLE 1 ; 1000 MG DAY 1 OF CYCLES 2-6

REACTIONS (8)
  - Neoplasm progression [Unknown]
  - Anaemia [Unknown]
  - Respiratory tract infection [Unknown]
  - Leukocytosis [Unknown]
  - Lymphocytosis [Unknown]
  - Splenomegaly [Unknown]
  - COVID-19 [Recovered/Resolved]
  - Laboratory test abnormal [Unknown]

NARRATIVE: CASE EVENT DATE: 20211117
